FAERS Safety Report 18268324 (Version 1)
Quarter: 2020Q3

REPORT INFORMATION
  Report Type: Spontaneous
  Country: US (occurrence: US)
  Receive Date: 20200830
  Receipt Date: 20200830
  Transmission Date: 20201103
  Serious: Yes (Other)
  Sender: FDA-Public Use
  Company Number: None

PATIENT
  Age: 63 Year
  Sex: Male
  Weight: 90 kg

DRUGS (1)
  1. SINUOREGA [Suspect]
     Active Substance: HERBALS
     Indication: SINUSITIS
     Dosage: ?          QUANTITY:1 SPRAY(S);OTHER ROUTE:NASAL AS SPRAY?
     Dates: start: 20200728, end: 20200728

REACTIONS (5)
  - Burning sensation [None]
  - Drug intolerance [None]
  - Product formulation issue [None]
  - Sinus pain [None]
  - Anosmia [None]

NARRATIVE: CASE EVENT DATE: 20200728
